FAERS Safety Report 24899142 (Version 1)
Quarter: 2025Q1

REPORT INFORMATION
  Report Type: Spontaneous
  Country: US (occurrence: None)
  Receive Date: 20250129
  Receipt Date: 20250129
  Transmission Date: 20250409
  Serious: Yes (Hospitalization)
  Sender: FDA-CTU
  Company Number: None

PATIENT
  Age: 61 Year
  Sex: Male
  Weight: 90.1 kg

DRUGS (8)
  1. CYCLOPHOSPHAMIDE [Suspect]
     Active Substance: CYCLOPHOSPHAMIDE
     Dates: end: 20241215
  2. CYTARABINE [Suspect]
     Active Substance: CYTARABINE
     Dates: end: 20241213
  3. DEXAMETHASONE [Suspect]
     Active Substance: DEXAMETHASONE
     Dates: end: 20241225
  4. DOXORUBICIN HYDROCHLORIDE [Suspect]
     Active Substance: DOXORUBICIN HYDROCHLORIDE
  5. MESNA [Suspect]
     Active Substance: MESNA
     Dates: end: 20241215
  6. METHOTREXATE [Suspect]
     Active Substance: METHOTREXATE
     Dates: end: 20241220
  7. PONATINIB [Suspect]
     Active Substance: PONATINIB
     Dates: end: 20241227
  8. VINCRISTINE SULFATE [Suspect]
     Active Substance: VINCRISTINE SULFATE
     Dates: end: 20241220

REACTIONS (5)
  - Back pain [None]
  - Arthralgia [None]
  - Arthralgia [None]
  - Pain [None]
  - Intervertebral disc protrusion [None]

NARRATIVE: CASE EVENT DATE: 20241227
